FAERS Safety Report 8077402-8 (Version None)
Quarter: 2012Q1

REPORT INFORMATION
  Report Type: 
  Country: None (occurrence: None)
  Receive Date: 20120127
  Receipt Date: 20120116
  Transmission Date: 20120608
  Serious: Yes (Hospitalization, Disabling, Other)
  Sender: FDA-Public Use
  Company Number: US-ELI_LILLY_AND_COMPANY-US201111008793

PATIENT
  Sex: Female

DRUGS (6)
  1. NOVOLOG [Concomitant]
  2. HUMULIN N [Suspect]
     Indication: DIABETES MELLITUS
     Dosage: UNK UNK, PRN
     Dates: start: 19810101
  3. CIPROFLOXACIN [Concomitant]
  4. HUMULIN R [Suspect]
     Indication: DIABETES MELLITUS
     Dosage: UNK UNK, PRN
     Dates: start: 19810101
  5. ANTIHYPERTENSIVES [Concomitant]
     Indication: BLOOD PRESSURE
  6. LANTUS [Concomitant]

REACTIONS (4)
  - TOE AMPUTATION [None]
  - OSTEOMYELITIS [None]
  - MEDICATION ERROR [None]
  - LOCALISED INFECTION [None]
